FAERS Safety Report 23337500 (Version 2)
Quarter: 2023Q4

REPORT INFORMATION
  Report Type: Report from Study
  Country: US (occurrence: US)
  Receive Date: 20231226
  Receipt Date: 20231228
  Transmission Date: 20240110
  Serious: Yes (Hospitalization)
  Sender: FDA-Public Use
  Company Number: US-ABBVIE-5551746

PATIENT
  Sex: Male

DRUGS (1)
  1. HUMIRA [Suspect]
     Active Substance: ADALIMUMAB
     Indication: Crohn^s disease
     Dosage: CF?FORM STRENGTH: 40 MILLIGRAM
     Route: 058
     Dates: start: 20231019

REACTIONS (6)
  - Haemoglobin decreased [Recovering/Resolving]
  - Pallor [Unknown]
  - Crohn^s disease [Recovering/Resolving]
  - Haematochezia [Unknown]
  - Clostridium difficile infection [Recovering/Resolving]
  - Cytomegalovirus test positive [Recovering/Resolving]

NARRATIVE: CASE EVENT DATE: 20230101
